FAERS Safety Report 14126006 (Version 5)
Quarter: 2017Q4

REPORT INFORMATION
  Report Type: Spontaneous
  Country: US (occurrence: US)
  Receive Date: 20171025
  Receipt Date: 20171127
  Transmission Date: 20180321
  Serious: Yes (Hospitalization, Other)
  Sender: FDA-Public Use
  Company Number: US-TEVA-819605USA

PATIENT
  Age: 52 Year
  Sex: Female
  Weight: 108.96 kg

DRUGS (1)
  1. PHENTERMINE. [Suspect]
     Active Substance: PHENTERMINE
     Indication: WEIGHT DECREASED
     Dosage: 37.5 MILLIGRAM DAILY;
     Route: 048
     Dates: start: 2017, end: 20171020

REACTIONS (13)
  - Anxiety [Unknown]
  - Supraventricular tachycardia [Unknown]
  - Chest pain [Unknown]
  - Myocardial necrosis marker increased [Unknown]
  - Apparent death [Not Recovered/Not Resolved]
  - Heart rate increased [Unknown]
  - Dyspepsia [Unknown]
  - Palpitations [Unknown]
  - Aphasia [Unknown]
  - Chest discomfort [Unknown]
  - Fear [Unknown]
  - Thrombosis [Unknown]
  - Drug ineffective [Unknown]

NARRATIVE: CASE EVENT DATE: 201710
